FAERS Safety Report 15713167 (Version 3)
Quarter: 2018Q4

REPORT INFORMATION
  Report Type: Report from Study
  Country: US (occurrence: US)
  Receive Date: 20181212
  Receipt Date: 20181224
  Transmission Date: 20190205
  Serious: No
  Sender: FDA-Public Use
  Company Number: US-ROCHE-2229028

PATIENT
  Age: 33 Year
  Sex: Female
  Weight: 49.94 kg

DRUGS (3)
  1. OCREVUS [Suspect]
     Active Substance: OCRELIZUMAB
     Indication: RELAPSING MULTIPLE SCLEROSIS
     Route: 042
     Dates: start: 20180801
  2. GABAPENTIN. [Concomitant]
     Active Substance: GABAPENTIN
     Indication: NEURALGIA
     Route: 065
  3. BACLOFEN. [Concomitant]
     Active Substance: BACLOFEN
     Indication: MUSCLE SPASMS
     Route: 065

REACTIONS (6)
  - Dysarthria [Recovered/Resolved with Sequelae]
  - Lacrimation increased [Recovered/Resolved with Sequelae]
  - Dysgeusia [Recovered/Resolved with Sequelae]
  - Herpes zoster [Not Recovered/Not Resolved]
  - Confusional state [Unknown]
  - Rash [Unknown]

NARRATIVE: CASE EVENT DATE: 201808
